FAERS Safety Report 5940784-4 (Version None)
Quarter: 2008Q4

REPORT INFORMATION
  Report Type: 
  Country: None (occurrence: None)
  Receive Date: 20081104
  Receipt Date: 20081006
  Transmission Date: 20090506
  Serious: No
  Sender: FDA-Public Use
  Company Number: US-JNJFOC-20081001720

PATIENT
  Sex: Male

DRUGS (7)
  1. INVEGA [Suspect]
  2. INVEGA [Suspect]
     Indication: AGITATION
  3. RISPERDAL [Suspect]
     Indication: AGITATION
     Route: 048
  4. PROZAC [Concomitant]
     Indication: DEPRESSION
  5. VALIUM [Concomitant]
     Indication: NECK PAIN
     Route: 048
  6. LYRICA [Concomitant]
     Route: 048
  7. OXYCODONE HCL [Concomitant]
     Indication: NECK PAIN
     Route: 048

REACTIONS (1)
  - OEDEMA PERIPHERAL [None]
